FAERS Safety Report 25016268 (Version 1)
Quarter: 2025Q1

REPORT INFORMATION
  Report Type: Spontaneous
  Country: US (occurrence: US)
  Receive Date: 20250227
  Receipt Date: 20250227
  Transmission Date: 20250408
  Serious: No
  Sender: BRISTOL-MYERS SQUIBB COMPANY
  Company Number: US-BRISTOL-MYERS SQUIBB COMPANY-2025-029404

PATIENT
  Age: 70 Year
  Sex: Female

DRUGS (1)
  1. THALOMID [Suspect]
     Active Substance: THALIDOMIDE
     Indication: Cachexia
     Route: 048

REACTIONS (5)
  - Abdominal distension [Unknown]
  - Constipation [Unknown]
  - Somnolence [Unknown]
  - Paraesthesia oral [Unknown]
  - Off label use [Unknown]
